FAERS Safety Report 14310997 (Version 1)
Quarter: 2017Q4

REPORT INFORMATION
  Report Type: Spontaneous
  Country: US (occurrence: US)
  Receive Date: 20171221
  Receipt Date: 20171221
  Transmission Date: 20180321
  Serious: No
  Sender: FDA-Public Use
  Company Number: US-SA-2017SA014210

PATIENT
  Age: 66 Year
  Sex: Male

DRUGS (6)
  1. PLAVIX [Suspect]
     Active Substance: CLOPIDOGREL BISULFATE
     Route: 065
  2. CARAFATE [Concomitant]
     Active Substance: SUCRALFATE
     Dates: start: 20070614
  3. CRESTOR [Concomitant]
     Active Substance: ROSUVASTATIN CALCIUM
     Dates: start: 20070614
  4. DARVON [Concomitant]
     Active Substance: PROPOXYPHENE HYDROCHLORIDE
     Dates: start: 20070614
  5. CODEINE [Concomitant]
     Active Substance: CODEINE
     Dates: start: 20070614
  6. PENICILLIN [Concomitant]
     Active Substance: PENICILLIN
     Dates: start: 20070614

REACTIONS (1)
  - Urticaria [Unknown]

NARRATIVE: CASE EVENT DATE: 20070614
